FAERS Safety Report 7573596-9 (Version None)
Quarter: 2011Q2

REPORT INFORMATION
  Report Type: 
  Country: None (occurrence: None)
  Receive Date: 20110627
  Receipt Date: 20110616
  Transmission Date: 20111010
  Serious: Yes (Life-Threatening)
  Sender: FDA-Public Use
  Company Number: GB-SHIRE-ALL1-2011-01985

PATIENT
  Age: 66 Year
  Sex: Male
  Weight: 83 kg

DRUGS (5)
  1. FUROSEMIDE [Concomitant]
     Indication: PRODUCT USED FOR UNKNOWN INDICATION
     Dosage: 40 MG, UNKNOWN
     Route: 048
     Dates: start: 20070101
  2. PREDNISONE [Concomitant]
     Indication: MYELOPROLIFERATIVE DISORDER
     Dosage: 60 MG, UNKNOWN
     Route: 048
     Dates: start: 20070101
  3. RAMIPRIL [Concomitant]
     Indication: HYPERTENSION
     Dosage: 2.5 MG, UNKNOWN
     Route: 048
     Dates: start: 20070101
  4. ANAGRELIDE HYDROCHLORIDE [Suspect]
     Indication: MYELOPROLIFERATIVE DISORDER
     Dosage: 0.5 MG, 2X/DAY:BID
     Route: 048
     Dates: start: 20110517, end: 20110518
  5. DIGOXIN [Concomitant]
     Indication: ATRIAL FIBRILLATION
     Dosage: 0.25 MG, UNKNOWN
     Route: 048
     Dates: start: 20070101

REACTIONS (2)
  - IMMUNOSUPPRESSION [None]
  - PNEUMOCYSTIS JIROVECI PNEUMONIA [None]
